FAERS Safety Report 5391211-X (Version None)
Quarter: 2007Q3

REPORT INFORMATION
  Report Type: 
  Country: None (occurrence: None)
  Receive Date: 20070719
  Receipt Date: 20070713
  Transmission Date: 20080115
  Serious: Yes (Hospitalization)
  Sender: FDA-Public Use
  Company Number: HQWYE037613JUL07

PATIENT
  Age: 7 Year
  Sex: Male

DRUGS (3)
  1. IBUPROFEN [Suspect]
     Dosage: 10 MG/KG/DOSE 8 HOURLY
     Route: 065
  2. INDOMETHACIN [Suspect]
     Dosage: 25 MG 12 HOURLY
     Route: 065
  3. DICLOFENAC SODIUM [Suspect]
     Dosage: UNKNOWN
     Route: 054

REACTIONS (1)
  - RENAL FAILURE ACUTE [None]
